FAERS Safety Report 6645639-8 (Version None)
Quarter: 2010Q1

REPORT INFORMATION
  Report Type: 
  Country: None (occurrence: None)
  Receive Date: 20100323
  Receipt Date: 20100309
  Transmission Date: 20100710
  Serious: Yes (Death, Other)
  Sender: FDA-Public Use
  Company Number: US-ELI_LILLY_AND_COMPANY-US200912003031

PATIENT
  Sex: Female

DRUGS (21)
  1. FORTEO [Suspect]
     Indication: OSTEOPOROSIS
     Dosage: UNK, UNKNOWN
     Route: 065
     Dates: start: 20090101, end: 20091211
  2. SYNTHROID [Concomitant]
     Dosage: 0.25 MG, DAILY (1/D)
  3. TOPROL-XL [Concomitant]
     Dosage: 50 MG, DAILY (1/D)
  4. IRON SULFATETHIAMIN COMPOUND TAB [Concomitant]
     Dosage: 325 MG, 3/D
  5. DULCOLAX [Concomitant]
     Dosage: UNK, DAILY (1/D)
  6. BENICAR [Concomitant]
     Dosage: 20 MG, QOD
  7. COLACE [Concomitant]
     Dosage: 100 MG, 2/D
  8. ICAPS [Concomitant]
     Dosage: 2 D/F, DAILY (1/D)
  9. MEGESTROL [Concomitant]
     Indication: UTERINE NEOPLASM
     Dosage: 20 MG, 2/D
  10. ALBUTEROL [Concomitant]
     Dosage: 0.083 %, AS NEEDED
     Route: 055
  11. VICODIN [Concomitant]
     Indication: PAIN
     Dosage: UNK, AS NEEDED
  12. LOTRISONE [Concomitant]
  13. OMEPRAZOLE [Concomitant]
     Dosage: 20 MG, DAILY (1/D)
  14. MIRALAX [Concomitant]
  15. CALCIUM [Concomitant]
     Dosage: 1 D/F, 3/D
  16. TYLENOL (CAPLET) [Concomitant]
     Indication: PAIN
     Dosage: UNK, AS NEEDED
  17. ZINC OXIDE [Concomitant]
     Dosage: UNK, 4/D
  18. OCUFLOX [Concomitant]
     Dosage: 2 GTT, 4/D
  19. ATIVAN [Concomitant]
     Dosage: 0.5 MG, AS NEEDED
  20. SENNA [Concomitant]
     Dosage: 2 D/F, EACH EVENING
  21. MORPHINE [Concomitant]
     Indication: PAIN
     Dosage: UNK, AS NEEDED

REACTIONS (6)
  - AORTIC STENOSIS [None]
  - ARTERIOSCLEROSIS [None]
  - CARDIAC FAILURE CONGESTIVE [None]
  - DEMENTIA [None]
  - OSTEOPOROSIS [None]
  - RENAL FAILURE CHRONIC [None]
